FAERS Safety Report 7620282-2 (Version None)
Quarter: 2011Q3

REPORT INFORMATION
  Report Type: 
  Country: None (occurrence: None)
  Receive Date: 20110719
  Receipt Date: 20110711
  Transmission Date: 20111222
  Serious: Yes (Disabling, Other)
  Sender: FDA-Public Use
  Company Number: PHHY2011US42429

PATIENT
  Sex: Female

DRUGS (5)
  1. SYNTHROID [Concomitant]
     Dosage: 0.137 MG, UNK
     Route: 048
     Dates: start: 19941111
  2. FOSAMAX [Concomitant]
     Dosage: 70 MG, WEEKLY
     Route: 048
     Dates: start: 20071111
  3. VIDAZA [Concomitant]
     Route: 042
  4. EXJADE [Suspect]
     Indication: 5Q MINUS SYNDROME
     Dosage: 750 MG, QD
     Route: 048
     Dates: start: 20110510, end: 20110517
  5. ARANESP [Concomitant]
     Dosage: 500 UG, WEEKLY
     Route: 058

REACTIONS (3)
  - EYE DISORDER [None]
  - DEAFNESS [None]
  - VISION BLURRED [None]
